FAERS Safety Report 18104895 (Version 1)
Quarter: 2020Q3

REPORT INFORMATION
  Report Type: Spontaneous
  Country: US (occurrence: US)
  Receive Date: 20200804
  Receipt Date: 20200804
  Transmission Date: 20201103
  Serious: No
  Sender: FDA-Public Use
  Company Number: US-ELI_LILLY_AND_COMPANY-US202007002807

PATIENT
  Sex: Female

DRUGS (1)
  1. HUMULIN 70/30 [Suspect]
     Active Substance: INSULIN HUMAN
     Indication: TYPE 2 DIABETES MELLITUS
     Dosage: 15 U, BID(MORNING AND EVENING)
     Route: 058

REACTIONS (5)
  - Vision blurred [Unknown]
  - Hypertension [Not Recovered/Not Resolved]
  - Blood glucose increased [Recovered/Resolved]
  - Headache [Unknown]
  - Drug ineffective [Unknown]
